FAERS Safety Report 18335979 (Version 1)
Quarter: 2020Q4

REPORT INFORMATION
  Report Type: Spontaneous
  Country: CA (occurrence: CA)
  Receive Date: 20201001
  Receipt Date: 20201001
  Transmission Date: 20210113
  Serious: Yes (Life-Threatening, Hospitalization, Other)
  Sender: FDA-Public Use
  Company Number: CA-JNJFOC-20200951874

PATIENT

DRUGS (1)
  1. PARACETAMOL [Suspect]
     Active Substance: ACETAMINOPHEN
     Indication: PRODUCT USED FOR UNKNOWN INDICATION
     Route: 065

REACTIONS (13)
  - Arrhythmia [Unknown]
  - Accidental overdose [Unknown]
  - Acute hepatic failure [Unknown]
  - Intracranial pressure increased [Unknown]
  - Intentional overdose [Unknown]
  - Hepatic encephalopathy [Unknown]
  - Coma [Unknown]
  - Toxicity to various agents [Unknown]
  - Seizure [Unknown]
  - Gastrointestinal haemorrhage [Unknown]
  - Suicide attempt [Unknown]
  - Chronic hepatic failure [Unknown]
  - Brain oedema [Unknown]
